FAERS Safety Report 6967645-6 (Version None)
Quarter: 2010Q3

REPORT INFORMATION
  Report Type: 
  Country: None (occurrence: None)
  Receive Date: 20100901
  Receipt Date: 20100825
  Transmission Date: 20110219
  Serious: Yes (Other)
  Sender: FDA-Public Use
  Company Number: DSA_43384_2010

PATIENT
  Sex: Male

DRUGS (1)
  1. ELONTRIL (ELONTRIL - BUPROPION HYDROCHLORIDE EXTENDED RELEASE ) (NOT S [Suspect]
     Indication: PRODUCT USED FOR UNKNOWN INDICATION
     Dosage: (150 MG QD ORAL)
     Route: 048

REACTIONS (1)
  - ATRIAL FIBRILLATION [None]
